FAERS Safety Report 4805436-2 (Version None)
Quarter: 2005Q4

REPORT INFORMATION
  Report Type: 
  Country: None (occurrence: None)
  Receive Date: 20051018
  Receipt Date: 20051006
  Transmission Date: 20060501
  Serious: Yes (Life-Threatening, Hospitalization, Other)
  Sender: FDA-Public Use
  Company Number: 2005138385

PATIENT
  Age: 14 Year
  Sex: Female

DRUGS (2)
  1. NORVASC [Suspect]
     Indication: ILL-DEFINED DISORDER
     Dosage: 150 MG (DAILY), ORAL
     Route: 048
  2. LOSARTAN POTASSIUM [Suspect]
     Indication: SCHIZOAFFECTIVE DISORDER

REACTIONS (4)
  - HYPOTENSION [None]
  - INTENTIONAL DRUG MISUSE [None]
  - MULTIPLE DRUG OVERDOSE [None]
  - SUICIDE ATTEMPT [None]
